FAERS Safety Report 24015508 (Version 1)
Quarter: 2024Q2

REPORT INFORMATION
  Report Type: Spontaneous
  Country: US (occurrence: US)
  Receive Date: 20240626
  Receipt Date: 20240626
  Transmission Date: 20240716
  Serious: No
  Sender: FDA-Public Use
  Company Number: US-MYLANLABS-2024M1056024

PATIENT
  Sex: Female

DRUGS (1)
  1. DILANTIN [Suspect]
     Active Substance: PHENYTOIN
     Indication: Seizure
     Dosage: 100 MILLIGRAM, TID (THREE TIMES A DAY)
     Route: 065

REACTIONS (7)
  - Hypoaesthesia [Unknown]
  - Muscle tightness [Unknown]
  - Erythema [Unknown]
  - Oral disorder [Unknown]
  - Eye pruritus [Unknown]
  - Rash erythematous [Unknown]
  - Product availability issue [Unknown]

NARRATIVE: CASE EVENT DATE: 20240501
